FAERS Safety Report 9069143 (Version 1)
Quarter: 2013Q1

REPORT INFORMATION
  Report Type: Report from Study
  Country: US (occurrence: US)
  Receive Date: 20130131
  Receipt Date: 20130131
  Transmission Date: 20140127
  Serious: No
  Sender: FDA-Public Use
  Company Number: US-ABBOTT-12P-163-1000594-00

PATIENT
  Age: 50 Year
  Sex: Male

DRUGS (3)
  1. HUMIRA [Suspect]
     Indication: PSORIASIS
     Dates: start: 201001
  2. HUMIRA [Suspect]
     Dosage: LOADING DOSE
     Dates: start: 20121011
  3. HUMIRA [Suspect]
     Dates: start: 20121018

REACTIONS (6)
  - Psoriasis [Not Recovered/Not Resolved]
  - Dizziness [Unknown]
  - Disturbance in attention [Unknown]
  - Poor quality sleep [Unknown]
  - Dyspnoea [Unknown]
  - Depression [Unknown]
